FAERS Safety Report 5537949-2 (Version None)
Quarter: 2007Q4

REPORT INFORMATION
  Report Type: 
  Country: None (occurrence: None)
  Receive Date: 20071207
  Receipt Date: 20071127
  Transmission Date: 20080405
  Serious: Yes (Other)
  Sender: FDA-Public Use
  Company Number: US-PFIZER INC-2007100243

PATIENT
  Sex: Female
  Weight: 59.4 kg

DRUGS (16)
  1. LYRICA [Suspect]
     Indication: POST HERPETIC NEURALGIA
  2. LORTAB [Concomitant]
  3. COMPAZINE [Concomitant]
  4. CORDARONE [Concomitant]
  5. COZAAR [Concomitant]
  6. CRESTOR [Concomitant]
  7. CORTEF [Concomitant]
  8. FOSAMAX [Concomitant]
  9. FERROUS SULFATE TAB [Concomitant]
  10. LASIX [Concomitant]
  11. MEGESTROL ACETATE [Concomitant]
  12. POTASSIUM CHLORIDE [Concomitant]
  13. PREMARIN [Concomitant]
  14. SPIRONOLACTONE [Concomitant]
  15. SYNTHROID [Concomitant]
  16. VITAMIN CAP [Concomitant]

REACTIONS (8)
  - BLOOD PRESSURE DECREASED [None]
  - CONFUSIONAL STATE [None]
  - HEART RATE INCREASED [None]
  - HYPERSOMNIA [None]
  - OXYGEN SATURATION DECREASED [None]
  - POST HERPETIC NEURALGIA [None]
  - SPEECH DISORDER [None]
  - THINKING ABNORMAL [None]
